FAERS Safety Report 15533596 (Version 4)
Quarter: 2018Q4

REPORT INFORMATION
  Report Type: Spontaneous
  Country: ZA (occurrence: ZA)
  Receive Date: 20181019
  Receipt Date: 20181214
  Transmission Date: 20190205
  Serious: Yes (Other)
  Sender: FDA-Public Use
  Company Number: ZA-SAOL THERAPEUTICS-2018SAO01024

PATIENT
  Age: 14 Year
  Sex: Male
  Weight: 14 kg

DRUGS (16)
  1. LIORESAL [Suspect]
     Active Substance: BACLOFEN
     Dosage: 212 ?G, \DAY
     Dates: start: 20170405
  2. EPILIM [Concomitant]
     Active Substance: VALPROATE SODIUM
     Dosage: 280 MG, 3X/DAY ^8 HOURLY^
  3. LIORESAL [Suspect]
     Active Substance: BACLOFEN
     Dosage: 212 ?G, \DAY
     Route: 037
     Dates: start: 20170405
  4. BACLOFEN. [Concomitant]
     Active Substance: BACLOFEN
     Dosage: 15 MG, 1X/DAY ^NOCTE^ (AT NIGHT)
     Route: 048
  5. LIORESAL [Suspect]
     Active Substance: BACLOFEN
     Dosage: 256 ?G, \DAY
     Dates: start: 20171117
  6. PYRIDOXINE [Concomitant]
     Active Substance: PYRIDOXINE
     Dosage: 50 MG, 2X/DAY
  7. LIORESAL [Suspect]
     Active Substance: BACLOFEN
     Dosage: 100 ?G, \DAY
     Route: 037
     Dates: start: 20150209
  8. LIORESAL [Suspect]
     Active Substance: BACLOFEN
     Dosage: 346.5 ?G, \DAY
     Route: 037
     Dates: start: 20170803
  9. KEPPRA [Concomitant]
     Active Substance: LEVETIRACETAM
     Dosage: 250 MG, 1X/DAY IN THE MORNING
  10. NEXIUM [Concomitant]
     Active Substance: ESOMEPRAZOLE MAGNESIUM
     Dosage: 10 MG, 1X/DAY
  11. RIVOTRIL [Concomitant]
     Active Substance: CLONAZEPAM
     Dosage: 0.5 MG, 1X/DAY^NOCTE^ (AT NIGHT).
  12. LIORESAL [Suspect]
     Active Substance: BACLOFEN
     Dosage: 121 ?G, \DAY
     Dates: start: 20150626, end: 20150626
  13. LIORESAL [Suspect]
     Active Substance: BACLOFEN
     Dosage: 133.3 ?G/DAY
     Route: 037
     Dates: start: 20150626
  14. LIORESAL [Suspect]
     Active Substance: BACLOFEN
     Dosage: 175.7 ?G/DAY
     Route: 037
     Dates: start: 20160819
  15. LIORESAL [Suspect]
     Active Substance: BACLOFEN
     Dosage: UNK
     Dates: start: 201402, end: 20150209
  16. KEPPRA [Concomitant]
     Active Substance: LEVETIRACETAM
     Dosage: 500 MG, 1X/DAY AT NIGHT

REACTIONS (6)
  - Shigella infection [Unknown]
  - Restlessness [Unknown]
  - Insomnia [Not Recovered/Not Resolved]
  - Irritability [Not Recovered/Not Resolved]
  - Implant site pain [Not Recovered/Not Resolved]
  - Device infusion issue [Not Recovered/Not Resolved]

NARRATIVE: CASE EVENT DATE: 20140805
